FAERS Safety Report 16847523 (Version 2)
Quarter: 2019Q4

REPORT INFORMATION
  Report Type: Other
  Country: US (occurrence: US)
  Receive Date: 20190924
  Receipt Date: 20191222
  Transmission Date: 20200122
  Serious: No
  Sender: FDA-Public Use
  Company Number: US-ACORDA-ACO_160000_2019

PATIENT
  Age: 62 Year
  Sex: Female

DRUGS (2)
  1. INBRIJA [Suspect]
     Active Substance: LEVODOPA
     Indication: ON AND OFF PHENOMENON
  2. INBRIJA [Suspect]
     Active Substance: LEVODOPA
     Indication: PARKINSON^S DISEASE
     Dosage: 84 MILLIGRAM, PRN

REACTIONS (4)
  - Costochondritis [Unknown]
  - Coeliac disease [Unknown]
  - Pharyngitis streptococcal [Unknown]
  - Cough [Unknown]

NARRATIVE: CASE EVENT DATE: 20190914
